FAERS Safety Report 5266466-2 (Version None)
Quarter: 2007Q1

REPORT INFORMATION
  Report Type: 
  Country: None (occurrence: None)
  Receive Date: 20070315
  Receipt Date: 20011001
  Transmission Date: 20070707
  Serious: Yes (Life-Threatening, Other)
  Sender: FDA-Public Use
  Company Number: US-BRISTOL-MYERS SQUIBB COMPANY-13550165

PATIENT
  Age: 28 Year
  Sex: Male

DRUGS (5)
  1. SUSTIVA [Suspect]
     Dates: start: 19980403
  2. ABACAVIR [Concomitant]
     Dates: start: 19980331
  3. COMBIVIR [Concomitant]
  4. PREVEON [Concomitant]
     Dates: start: 19980421
  5. LAMIVUDINE [Concomitant]

REACTIONS (2)
  - ANAEMIA [None]
  - BACTERIAL SEPSIS [None]
